FAERS Safety Report 9712819 (Version 1)
Quarter: 2013Q4

REPORT INFORMATION
  Report Type: Spontaneous
  Country: US (occurrence: US)
  Receive Date: 20131126
  Receipt Date: 20131126
  Transmission Date: 20140711
  Serious: No
  Sender: FDA-Public Use
  Company Number: US-BRISTOL-MYERS SQUIBB COMPANY-18920454

PATIENT
  Age: 42 Year
  Sex: Female
  Weight: 98.86 kg

DRUGS (3)
  1. BYDUREON 2MG SUSPENSION [Suspect]
     Indication: TYPE 2 DIABETES MELLITUS
     Dosage: 6 INJECTIONS
     Dates: start: 201304
  2. JANUMET [Concomitant]
     Dosage: 50/1000
  3. PROTONIX [Concomitant]

REACTIONS (6)
  - Injection site swelling [Unknown]
  - Injection site bruising [Unknown]
  - Nausea [Unknown]
  - Weight decreased [Unknown]
  - Decreased appetite [Unknown]
  - Dysgeusia [Unknown]
